FAERS Safety Report 5088181-0 (Version None)
Quarter: 2006Q3

REPORT INFORMATION
  Report Type: 
  Country: None (occurrence: None)
  Receive Date: 20060824
  Receipt Date: 20060815
  Transmission Date: 20061208
  Serious: Yes (Other)
  Sender: FDA-Public Use
  Company Number: DE-ABBOTT-06P-062-0340728-00

PATIENT
  Sex: Male

DRUGS (2)
  1. ERGENYL CHRONO TABLETS [Suspect]
     Indication: DEPRESSION
     Route: 048
  2. PHENPROCOUMON [Concomitant]
     Indication: HEART VALVE REPLACEMENT
     Route: 048

REACTIONS (2)
  - BLOOD BILIRUBIN INCREASED [None]
  - YELLOW SKIN [None]
